FAERS Safety Report 14846278 (Version 2)
Quarter: 2018Q2

REPORT INFORMATION
  Report Type: Spontaneous
  Country: US (occurrence: US)
  Receive Date: 20180504
  Receipt Date: 20180519
  Transmission Date: 20180711
  Serious: Yes (Other)
  Sender: FDA-Public Use
  Company Number: US-ROCHE-2115563

PATIENT
  Age: 50 Year
  Sex: Male

DRUGS (1)
  1. AVASTIN [Suspect]
     Active Substance: BEVACIZUMAB
     Indication: EYE DISORDER
     Route: 050
     Dates: start: 20170126

REACTIONS (10)
  - Endophthalmitis [Not Recovered/Not Resolved]
  - Emotional distress [Unknown]
  - Pain [Unknown]
  - Eye irritation [Unknown]
  - Intentional product use issue [Unknown]
  - Product contamination [Unknown]
  - Off label use [Unknown]
  - Vision blurred [Unknown]
  - Nervousness [Unknown]
  - Blindness unilateral [Unknown]
